FAERS Safety Report 6811253-4 (Version None)
Quarter: 2010Q2

REPORT INFORMATION
  Report Type: 
  Country: None (occurrence: None)
  Receive Date: 20100629
  Receipt Date: 20100629
  Transmission Date: 20101027
  Serious: Yes (Life-Threatening, Hospitalization)
  Sender: FDA-Public Use
  Company Number: None

PATIENT
  Age: 64 Year
  Sex: Male
  Weight: 156.94 kg

DRUGS (2)
  1. GENTAMICIN [Suspect]
     Indication: SEPSIS
     Dosage: 480 EVERY DAY IV
     Route: 042
     Dates: start: 20100516, end: 20100518
  2. VANCOMYCIN [Suspect]
     Indication: SEPSIS
     Dosage: 1750 MG EVERY DAY IV
     Route: 042
     Dates: start: 20100511, end: 20100519

REACTIONS (1)
  - RENAL TUBULAR NECROSIS [None]
